FAERS Safety Report 5042737-X (Version None)
Quarter: 2006Q2

REPORT INFORMATION
  Report Type: 
  Country: None (occurrence: None)
  Receive Date: 20060601
  Receipt Date: 20060227
  Transmission Date: 20061013
  Serious: No
  Sender: FDA-Public Use
  Company Number: 2006PV009415

PATIENT
  Age: 58 Year
  Sex: Female
  Weight: 85.2762 kg

DRUGS (4)
  1. BYETTA [Suspect]
     Indication: DIABETES MELLITUS NON-INSULIN-DEPENDENT
     Dosage: 5 MCG;BID;SC
     Route: 058
     Dates: start: 20060101
  2. AMARYL [Concomitant]
  3. GLUCOPHAGE [Concomitant]
  4. PEPCID [Concomitant]

REACTIONS (10)
  - ABDOMINAL DISTENSION [None]
  - BLOOD GLUCOSE DECREASED [None]
  - CONSTIPATION [None]
  - DIARRHOEA [None]
  - DYSPEPSIA [None]
  - HYPERCHLORHYDRIA [None]
  - HYPOAESTHESIA ORAL [None]
  - NAUSEA [None]
  - TREMOR [None]
  - WEIGHT DECREASED [None]
